FAERS Safety Report 9334735 (Version 1)
Quarter: 2013Q2

REPORT INFORMATION
  Report Type: Spontaneous
  Country: US (occurrence: US)
  Receive Date: 20130606
  Receipt Date: 20130606
  Transmission Date: 20140414
  Serious: No
  Sender: FDA-Public Use
  Company Number: US-AMGEN-USASP2013030688

PATIENT
  Age: 86 Year
  Sex: Female
  Weight: 63.49 kg

DRUGS (9)
  1. PROLIA [Suspect]
     Indication: OSTEOPOROSIS POSTMENOPAUSAL
     Dosage: 60 MG, Q6MO
     Route: 058
     Dates: start: 20110328
  2. PROLIA [Suspect]
     Dosage: UNK
  3. PROLIA [Suspect]
     Dosage: UNK
  4. PROLIA [Suspect]
     Dosage: UNK
  5. HYZAAR [Concomitant]
     Indication: HYPERTENSION
     Dosage: 100-25 MG, QD
     Route: 048
  6. ATENOLOL [Concomitant]
     Indication: HYPERTENSION
     Dosage: 50 MG, QD
     Route: 048
  7. SINGULAIR [Concomitant]
     Indication: HYPERSENSITIVITY
     Dosage: 10 MG, QD
     Route: 048
  8. CLONAZEPAM [Concomitant]
     Indication: ANXIETY
     Dosage: 0.5 MG, QD
     Route: 048
  9. CLARITIN                           /00917501/ [Concomitant]
     Indication: HYPERSENSITIVITY
     Dosage: 10 MG, AS NECESSARY
     Route: 048

REACTIONS (2)
  - Arthralgia [Not Recovered/Not Resolved]
  - Musculoskeletal pain [Unknown]
